FAERS Safety Report 4280164-3 (Version None)
Quarter: 2004Q1

REPORT INFORMATION
  Report Type: 
  Country: None (occurrence: None)
  Receive Date: 20040126
  Receipt Date: 20040108
  Transmission Date: 20041129
  Serious: Yes (Hospitalization)
  Sender: FDA-Public Use
  Company Number: DSA_23751_2003

PATIENT
  Age: 27 Year
  Sex: Female

DRUGS (4)
  1. TAVOR [Suspect]
     Dates: start: 20031216, end: 20031216
  2. AMITRIPTYLINE HCL [Suspect]
     Dosage: 625 MG ONCE PO
     Route: 048
     Dates: start: 20031216, end: 20031216
  3. LENDORM [Suspect]
     Dosage: 25 MG ONCE PO
     Route: 048
     Dates: start: 20031216, end: 20031216
  4. STANGYL [Suspect]
     Dates: start: 20031216, end: 20031216

REACTIONS (4)
  - FATIGUE [None]
  - MULTIPLE DRUG OVERDOSE [None]
  - TACHYCARDIA [None]
  - VOMITING [None]
